FAERS Safety Report 5803354-4 (Version None)
Quarter: 2008Q3

REPORT INFORMATION
  Report Type: 
  Country: None (occurrence: None)
  Receive Date: 20080708
  Receipt Date: 20080702
  Transmission Date: 20090109
  Serious: Yes (Other)
  Sender: FDA-Public Use
  Company Number: US-JNJFOC-20080701299

PATIENT
  Age: 40 Year
  Sex: Female
  Weight: 64.86 kg

DRUGS (1)
  1. EXTRA STRENGTH TYLENOL [Suspect]
     Indication: BACK PAIN
     Dosage: 2 DOSES EVERY 4-6 HOURS, INCREASED TO 2 DOSES EVERY 30 MINUTES
     Route: 048

REACTIONS (2)
  - DEPENDENCE [None]
  - INTENTIONAL OVERDOSE [None]
